FAERS Safety Report 10347998 (Version 1)
Quarter: 2014Q3

REPORT INFORMATION
  Report Type: Spontaneous
  Country: US (occurrence: None)
  Receive Date: 20140725
  Receipt Date: 20140725
  Transmission Date: 20150326
  Serious: Yes (Other)
  Sender: FDA-Public Use
  Company Number: 2010S1003172

PATIENT
  Age: 55 Year
  Sex: Male
  Weight: 143 kg

DRUGS (10)
  1. DULCOLAX [Suspect]
     Active Substance: BISACODYL OR DOCUSATE SODIUM
     Indication: COLONOSCOPY
     Dosage: 2 TOTAL
  2. ACTOS [Concomitant]
     Active Substance: PIOGLITAZONE HYDROCHLORIDE
  3. LOTENSIN [Concomitant]
     Active Substance: BENAZEPRIL HYDROCHLORIDE
  4. HYDROCHLOROTHIAZIDE (HYDROCHLOROTHIAZIDE) [Concomitant]
     Active Substance: HYDROCHLOROTHIAZIDE
  5. MAGNESIUM CITRATE (MAGNESIUM CITRATE) [Suspect]
     Active Substance: MAGNESIUM CITRATE
     Indication: COLONOSCOPY
  6. GOLYTELY [Suspect]
     Active Substance: POLYETHYLENE GLYCOL 3350\POTASSIUM CHLORIDE\SODIUM BICARBONATE\SODIUM CHLORIDE\SODIUM SULFATE ANHYDROUS
     Indication: COLONOSCOPY
     Route: 048
  7. AMARYL [Concomitant]
     Active Substance: GLIMEPIRIDE
  8. TRICOR [Concomitant]
     Active Substance: FENOFIBRATE
  9. NEURONTIN [Concomitant]
     Active Substance: GABAPENTIN
  10. PHOSPHO-SODA [Suspect]
     Active Substance: SODIUM PHOSPHATE, DIBASIC\SODIUM PHOSPHATE, MONOBASIC
     Indication: COLONOSCOPY
     Route: 048

REACTIONS (63)
  - Abasia [None]
  - Gastrointestinal haemorrhage [None]
  - Ocular discomfort [None]
  - Tremor [None]
  - Gout [None]
  - Rectal haemorrhage [None]
  - Polyp [None]
  - Oedema [None]
  - Gastrointestinal motility disorder [None]
  - Abdominal distension [None]
  - Depression [None]
  - Cellulitis [None]
  - Fluid retention [None]
  - Anaemia [None]
  - Impaired healing [None]
  - Pain in extremity [None]
  - Musculoskeletal pain [None]
  - Weight decreased [None]
  - Joint swelling [None]
  - Occupational exposure to toxic agent [None]
  - Peripheral swelling [None]
  - Fatigue [None]
  - Metabolic acidosis [None]
  - Breast neoplasm [None]
  - Neck mass [None]
  - Diarrhoea [None]
  - Eye pain [None]
  - Photopsia [None]
  - Renal failure chronic [None]
  - Dizziness [None]
  - Abnormal dreams [None]
  - Sleep apnoea syndrome [None]
  - Anaemia of chronic disease [None]
  - Visual acuity reduced [None]
  - Hypertensive nephropathy [None]
  - Weight loss poor [None]
  - Periarthritis [None]
  - Neuropathy peripheral [None]
  - Injection site pain [None]
  - Sleep disorder [None]
  - Renal failure acute [None]
  - Nephrogenic anaemia [None]
  - Chronic obstructive pulmonary disease [None]
  - Hyperchloraemia [None]
  - Focal segmental glomerulosclerosis [None]
  - Skin lesion [None]
  - Asthenia [None]
  - Nausea [None]
  - Rash erythematous [None]
  - Acute phosphate nephropathy [None]
  - Injury [None]
  - Arthralgia [None]
  - Bronchospasm [None]
  - Arteriosclerosis [None]
  - Hypothyroidism [None]
  - Decreased appetite [None]
  - Joint injury [None]
  - Joint effusion [None]
  - Pulmonary hypertension [None]
  - Diabetes mellitus inadequate control [None]
  - Viral infection [None]
  - Abdominal pain [None]
  - Flatulence [None]

NARRATIVE: CASE EVENT DATE: 20010228
